FAERS Safety Report 24971910 (Version 1)
Quarter: 2025Q1

REPORT INFORMATION
  Report Type: Spontaneous
  Country: DE (occurrence: DE)
  Receive Date: 20250214
  Receipt Date: 20250214
  Transmission Date: 20250409
  Serious: Yes (Hospitalization, Other)
  Sender: AMGEN
  Company Number: DE-AMGEN-DEUSP2025029036

PATIENT

DRUGS (2)
  1. ADALIMUMAB [Suspect]
     Active Substance: ADALIMUMAB
     Indication: Crohn^s disease
     Route: 065
  2. PREDNISONE [Suspect]
     Active Substance: PREDNISONE
     Indication: Crohn^s disease
     Route: 065

REACTIONS (17)
  - Crohn^s disease [Unknown]
  - Sepsis [Unknown]
  - Anastomotic leak [Unknown]
  - Intra-abdominal haemorrhage [Unknown]
  - Wound infection [Unknown]
  - Abscess [Unknown]
  - Fistula [Unknown]
  - Infection [Unknown]
  - Postoperative ileus [Unknown]
  - Intra-abdominal fluid collection [Unknown]
  - Diarrhoea [Unknown]
  - Wound dehiscence [Unknown]
  - Feeling hot [Unknown]
  - Flushing [Unknown]
  - Headache [Unknown]
  - Paraesthesia [Unknown]
  - Nausea [Unknown]
